FAERS Safety Report 8357982-5 (Version None)
Quarter: 2012Q2

REPORT INFORMATION
  Report Type: 
  Country: None (occurrence: None)
  Receive Date: 20120511
  Receipt Date: 20120430
  Transmission Date: 20120825
  Serious: Yes (Hospitalization)
  Sender: FDA-Public Use
  Company Number: AUR-APL-2012-01661

PATIENT
  Age: 59 Year
  Sex: Male

DRUGS (8)
  1. ASPIRIN [Concomitant]
  2. EZETIMIBE [Concomitant]
  3. FUROSEMIDE [Suspect]
     Indication: PRODUCT USED FOR UNKNOWN INDICATION
  4. TORSEMIDE [Suspect]
     Indication: PRODUCT USED FOR UNKNOWN INDICATION
  5. CARVEDILOL [Suspect]
     Indication: PRODUCT USED FOR UNKNOWN INDICATION
  6. BLINDED THERAPY [Suspect]
     Indication: TYPE 2 DIABETES MELLITUS
     Dates: start: 20110325, end: 20110708
  7. BLINDED THERAPY [Suspect]
     Indication: TYPE 2 DIABETES MELLITUS
     Dates: start: 20110927, end: 20111206
  8. SPIRONOLACTONE [Suspect]
     Indication: PRODUCT USED FOR UNKNOWN INDICATION

REACTIONS (7)
  - ABDOMINAL PAIN [None]
  - RENAL FAILURE ACUTE [None]
  - IRRITABLE BOWEL SYNDROME [None]
  - VOMITING [None]
  - INCORRECT DOSE ADMINISTERED [None]
  - COLON ADENOMA [None]
  - DIARRHOEA [None]
